FAERS Safety Report 6124625-0 (Version None)
Quarter: 2009Q1

REPORT INFORMATION
  Report Type: 
  Country: None (occurrence: None)
  Receive Date: 20090319
  Receipt Date: 20090311
  Transmission Date: 20090719
  Serious: Yes (Life-Threatening)
  Sender: FDA-Public Use
  Company Number: B0553869A

PATIENT
  Age: 77 Year
  Sex: Female
  Weight: 68 kg

DRUGS (12)
  1. AUGMENTIN '125' [Suspect]
     Indication: WRIST FRACTURE
     Dosage: 6G PER DAY
     Route: 042
     Dates: start: 20081230
  2. NOVOLOG MIX 70/30 [Concomitant]
     Dosage: 48UNIT PER DAY
     Route: 058
     Dates: start: 20081231, end: 20090115
  3. COVERSYL PLUS [Concomitant]
     Indication: HYPERTENSION
     Dosage: 4MG PER DAY
     Route: 048
     Dates: start: 20081230, end: 20090115
  4. MOXONIDINE [Concomitant]
     Indication: HYPERTENSION
     Dosage: .4MG PER DAY
     Route: 048
     Dates: start: 20081230, end: 20090115
  5. FLUDEX [Concomitant]
     Indication: HYPERTENSION
     Dosage: 2.5MG PER DAY
     Route: 048
     Dates: start: 20081230, end: 20090115
  6. CARDIOASPIRINE [Concomitant]
     Dosage: 100MG PER DAY
     Route: 048
     Dates: start: 20090103, end: 20090115
  7. NOVALGINE [Concomitant]
     Dosage: 500MG PER DAY
     Route: 048
     Dates: start: 20081230, end: 20090101
  8. TRAMADOL HCL [Concomitant]
     Dosage: 50MG PER DAY
     Route: 048
     Dates: start: 20081231, end: 20090103
  9. NULYTELY [Concomitant]
     Dosage: 2SAC PER DAY
     Route: 048
     Dates: start: 20090101, end: 20090105
  10. LOSFERON [Concomitant]
     Dosage: 695MG PER DAY
     Route: 048
     Dates: start: 20090103, end: 20090115
  11. ACETAMINOPHEN [Concomitant]
     Dosage: 4G PER DAY
     Route: 048
     Dates: start: 20090103, end: 20090115
  12. FRAXIPARINE [Concomitant]
     Dosage: .6ML PER DAY
     Dates: start: 20081229, end: 20090115

REACTIONS (5)
  - FACE OEDEMA [None]
  - PRODUCT QUALITY ISSUE [None]
  - RASH GENERALISED [None]
  - SPEECH DISORDER [None]
  - SWELLING FACE [None]
